FAERS Safety Report 15999351 (Version 10)
Quarter: 2020Q3

REPORT INFORMATION
  Report Type: Spontaneous
  Country: US (occurrence: US)
  Receive Date: 20190225
  Receipt Date: 20200728
  Transmission Date: 20201102
  Serious: No
  Sender: FDA-Public Use
  Company Number: US-PFIZER INC-2019078727

PATIENT
  Age: 66 Year
  Sex: Female

DRUGS (2)
  1. XELJANZ XR [Suspect]
     Active Substance: TOFACITINIB CITRATE
     Dosage: 11 MG, 1X/DAY
     Route: 048
     Dates: start: 201903
  2. XELJANZ XR [Suspect]
     Active Substance: TOFACITINIB CITRATE
     Indication: RHEUMATOID ARTHRITIS
     Dosage: 11 MG, 1X/DAY
     Route: 048
     Dates: start: 20190114, end: 2019

REACTIONS (11)
  - Limb discomfort [Not Recovered/Not Resolved]
  - Infection [Unknown]
  - Illness [Unknown]
  - Arthritis [Unknown]
  - Gout [Unknown]
  - Osteoporosis [Unknown]
  - Influenza [Recovering/Resolving]
  - Sinusitis [Recovered/Resolved]
  - Herpes zoster [Recovering/Resolving]
  - Diarrhoea [Unknown]
  - Therapeutic product effect incomplete [Unknown]

NARRATIVE: CASE EVENT DATE: 2019
